FAERS Safety Report 18431285 (Version 1)
Quarter: 2020Q4

REPORT INFORMATION
  Report Type: Spontaneous
  Country: GB (occurrence: GB)
  Receive Date: 20201027
  Receipt Date: 20201027
  Transmission Date: 20210114
  Serious: Yes (Other)
  Sender: FDA-Public Use
  Company Number: GB-TEVA-2020-GB-1840891

PATIENT
  Age: 67 Year
  Sex: Female
  Weight: 71.21 kg

DRUGS (6)
  1. CHLORAMPHENICOL [Concomitant]
     Active Substance: CHLORAMPHENICOL
  2. ACICLOVIR [Suspect]
     Active Substance: ACYCLOVIR
     Indication: HERPES OPHTHALMIC
     Dosage: ONE CENTIMETER,5 DOSAGE FORMS
     Route: 061
     Dates: start: 20200909, end: 20200911
  3. FUSIDIC ACID [Concomitant]
     Active Substance: FUSIDIC ACID
  4. SODIUM CROMOGLICATE [Concomitant]
     Active Substance: CROMOLYN SODIUM
  5. IBUPROFEN. [Concomitant]
     Active Substance: IBUPROFEN
  6. HYPROMELLOSE [Concomitant]
     Active Substance: HYPROMELLOSES

REACTIONS (3)
  - Foreign body sensation in eyes [Recovered/Resolved]
  - Swelling of eyelid [Recovered/Resolved]
  - Eye pain [Recovered/Resolved]

NARRATIVE: CASE EVENT DATE: 20200911
